FAERS Safety Report 10377627 (Version 2)
Quarter: 2014Q3

REPORT INFORMATION
  Report Type: Report from Study
  Country: BR (occurrence: BR)
  Receive Date: 20140812
  Receipt Date: 20140812
  Transmission Date: 20150326
  Serious: Yes (Other)
  Sender: FDA-Public Use
  Company Number: PHHY2014BR089618

PATIENT
  Sex: Male
  Weight: 48 kg

DRUGS (3)
  1. QUETIAPINE [Concomitant]
     Active Substance: QUETIAPINE
     Indication: NERVOUSNESS
     Dosage: 2 DF, AT NIGHT
     Dates: start: 2005
  2. EXELON [Suspect]
     Active Substance: RIVASTIGMINE TARTRATE
     Indication: DEMENTIA ALZHEIMER^S TYPE
     Dosage: 3 DF, IN THE MORNING, AT LUNCH, AT NIGHT
     Dates: start: 2005
  3. MEMANTINE [Concomitant]
     Active Substance: MEMANTINE
     Indication: DEMENTIA ALZHEIMER^S TYPE
     Dosage: 2 DF, 1 IN THE MORNING AND 1 AT NIGHT
     Dates: start: 2005

REACTIONS (11)
  - Dysphagia [Unknown]
  - Wrong technique in drug usage process [Unknown]
  - Posture abnormal [Not Recovered/Not Resolved]
  - Weight decreased [Unknown]
  - Parkinson^s disease [Unknown]
  - Aphonia [Not Recovered/Not Resolved]
  - Body height decreased [Not Recovered/Not Resolved]
  - Anger [Unknown]
  - Muscle rigidity [Unknown]
  - Abnormal behaviour [Unknown]
  - Speech disorder [Unknown]
